FAERS Safety Report 5893505-8 (Version None)
Quarter: 2008Q3

REPORT INFORMATION
  Report Type: 
  Country: None (occurrence: None)
  Receive Date: 20080923
  Receipt Date: 20080918
  Transmission Date: 20090109
  Serious: Yes (Hospitalization)
  Sender: FDA-Public Use
  Company Number: US-ABBOTT-08P-163-0477134-00

PATIENT
  Sex: Female
  Weight: 41.768 kg

DRUGS (7)
  1. HUMIRA [Suspect]
     Indication: RHEUMATOID ARTHRITIS
     Dates: start: 20070101
  2. HUMIRA [Suspect]
     Dosage: PRE-FILLED SYRINGE
     Dates: start: 20040101, end: 20070101
  3. LEVOTHYROXINE SODIUM [Concomitant]
     Indication: HYPOTHYROIDISM
     Dosage: 0.5 MG DAILY
     Route: 048
  4. RISEDRONATE SODIUM [Concomitant]
     Indication: RHEUMATOID ARTHRITIS
     Route: 048
  5. LEKOVIT CA [Concomitant]
     Indication: DRUG USE FOR UNKNOWN INDICATION
     Dosage: 1200 MG DAILY
     Route: 048
  6. TYLENOL (CAPLET) [Concomitant]
     Indication: RHEUMATOID ARTHRITIS
     Dosage: 1 PILL AS NEEDED
     Route: 048
     Dates: start: 20020101
  7. VICODIN [Concomitant]
     Indication: RHEUMATOID ARTHRITIS
     Dosage: 1 PILL AS NEEDED
     Route: 048
     Dates: start: 20060101

REACTIONS (4)
  - ARRHYTHMIA [None]
  - BLOOD CREATININE INCREASED [None]
  - BLOOD PRESSURE INCREASED [None]
  - CHEST PAIN [None]
